FAERS Safety Report 5402838-0 (Version None)
Quarter: 2007Q3

REPORT INFORMATION
  Report Type: 
  Country: None (occurrence: None)
  Receive Date: 20070730
  Receipt Date: 20070712
  Transmission Date: 20080115
  Serious: Yes (Life-Threatening, Hospitalization)
  Sender: FDA-Public Use
  Company Number: 158842ISR

PATIENT
  Age: 53 Year
  Sex: Female

DRUGS (9)
  1. FLUOROURACIL [Suspect]
     Indication: BREAST CANCER
     Dosage: (915 MG)
     Dates: start: 20040123, end: 20040510
  2. EPIRUBICIN [Suspect]
     Indication: BREAST CANCER
     Dosage: (183 MG)
     Dates: start: 20040123, end: 20040510
  3. CYCLOPHOSPHAMIDE [Suspect]
     Indication: BREAST CANCER
     Dosage: (915 MG)
     Dates: start: 20040123, end: 20040510
  4. BISOPROLOL FUMARATE [Concomitant]
  5. EXEMESTANE [Concomitant]
  6. RAMIPRIL [Concomitant]
  7. OSYROL-LASIX [Concomitant]
  8. FUROSEMIDE [Concomitant]
  9. ASPIRIN [Concomitant]

REACTIONS (3)
  - ACUTE PULMONARY OEDEMA [None]
  - CARDIOMYOPATHY [None]
  - CONDITION AGGRAVATED [None]
